FAERS Safety Report 13721376 (Version 1)
Quarter: 2017Q3

REPORT INFORMATION
  Report Type: Report from Study
  Country: BR (occurrence: BR)
  Receive Date: 20170706
  Receipt Date: 20170706
  Transmission Date: 20171127
  Serious: Yes (Other)
  Sender: FDA-Public Use
  Company Number: PHHY2017BR097963

PATIENT
  Sex: Female

DRUGS (2)
  1. EXELON PATCH [Suspect]
     Active Substance: RIVASTIGMINE
     Dosage: 9.5 MG, QD PATCH 10 (CM2)
     Route: 062
  2. EXELON PATCH [Suspect]
     Active Substance: RIVASTIGMINE
     Indication: DEMENTIA ALZHEIMER^S TYPE
     Route: 062

REACTIONS (8)
  - Weight decreased [Unknown]
  - Drug administration error [Unknown]
  - Dementia Alzheimer^s type [Unknown]
  - Somnolence [Unknown]
  - Agitation [Unknown]
  - Condition aggravated [Unknown]
  - Insomnia [Unknown]
  - Drug abuse [Unknown]
